FAERS Safety Report 7656771-4 (Version None)
Quarter: 2011Q3

REPORT INFORMATION
  Report Type: 
  Country: None (occurrence: None)
  Receive Date: 20110804
  Receipt Date: 20110720
  Transmission Date: 20111222
  Serious: Yes (Hospitalization)
  Sender: FDA-Public Use
  Company Number: JP-PFIZER INC-2011175434

PATIENT
  Age: 54 Year
  Sex: Male

DRUGS (1)
  1. DOXORUBICIN HYDROCHLORIDE [Suspect]
     Indication: ADULT T-CELL LYMPHOMA/LEUKAEMIA

REACTIONS (1)
  - PNEUMONIA CYTOMEGALOVIRAL [None]
